FAERS Safety Report 18270951 (Version 3)
Quarter: 2022Q1

REPORT INFORMATION
  Report Type: Report from Study
  Country: JP (occurrence: JP)
  Receive Date: 20200916
  Receipt Date: 20220317
  Transmission Date: 20220424
  Serious: Yes (Hospitalization, Other)
  Sender: FDA-Public Use
  Company Number: JP-VIIV HEALTHCARE LIMITED-JP2017JPN114804

PATIENT
  Sex: Male

DRUGS (7)
  1. ABACAVIR SULFATE\DOLUTEGRAVIR SODIUM\LAMIVUDINE [Suspect]
     Active Substance: ABACAVIR SULFATE\DOLUTEGRAVIR SODIUM\LAMIVUDINE
     Indication: HIV infection
     Dosage: 1 DF, 1D
     Route: 048
     Dates: start: 20161207, end: 20201021
  2. BISOPROLOL FUMARATE [Concomitant]
     Active Substance: BISOPROLOL FUMARATE
     Indication: Mitral valve incompetence
     Dosage: 3.75 MG, QD
     Dates: end: 20190401
  3. LORAZEPAM [Concomitant]
     Active Substance: LORAZEPAM
     Indication: Neurosis
     Dosage: 1 DF, PRN
     Dates: end: 20190401
  4. HERBALS [Concomitant]
     Active Substance: HERBALS
     Indication: Neurosis
     Dosage: 1 DF, TID
  5. FLAGYL [Concomitant]
     Active Substance: METRONIDAZOLE\METRONIDAZOLE HYDROCHLORIDE
     Indication: Amoebic dysentery
     Dosage: 750 MG, TID
     Dates: start: 20161228, end: 20170106
  6. BISOPROLOL FUMARATE TABLET [Concomitant]
     Dosage: UNK
     Dates: start: 20191027, end: 20191104
  7. DOVATO [Concomitant]
     Active Substance: DOLUTEGRAVIR SODIUM\LAMIVUDINE
     Indication: HIV infection
     Dosage: 1 DF, 1D
     Dates: start: 20201022

REACTIONS (6)
  - Herpes zoster [Recovering/Resolving]
  - Anal cancer [Recovering/Resolving]
  - Helicobacter test positive [Recovered/Resolved]
  - Haemangioma of liver [Recovering/Resolving]
  - Blood uric acid increased [Recovered/Resolved]
  - Nausea [Recovering/Resolving]

NARRATIVE: CASE EVENT DATE: 20170111
